FAERS Safety Report 20404227 (Version 2)
Quarter: 2022Q1

REPORT INFORMATION
  Report Type: Spontaneous
  Country: US (occurrence: US)
  Receive Date: 20220131
  Receipt Date: 20220214
  Transmission Date: 20220423
  Serious: No
  Sender: FDA-Public Use
  Company Number: US-AMGEN-USASP2022008711

PATIENT
  Age: 76 Year
  Sex: Female
  Weight: 71.565 kg

DRUGS (1)
  1. REPATHA [Suspect]
     Active Substance: EVOLOCUMAB
     Indication: Blood cholesterol abnormal
     Dosage: 140 MILLIGRAM, Q2WK
     Route: 065
     Dates: start: 20201216

REACTIONS (3)
  - Wrong technique in product usage process [Unknown]
  - Product dose omission issue [Unknown]
  - Cough [Unknown]

NARRATIVE: CASE EVENT DATE: 20220101
